FAERS Safety Report 12100543 (Version 1)
Quarter: 2016Q1

REPORT INFORMATION
  Report Type: Spontaneous
  Country: ES (occurrence: ES)
  Receive Date: 20160222
  Receipt Date: 20160222
  Transmission Date: 20160526
  Serious: Yes (Life-Threatening, Other)
  Sender: FDA-Public Use
  Company Number: ES-PFIZER INC-2016031501

PATIENT
  Age: 78 Year
  Sex: Female

DRUGS (39)
  1. SEGURIL [Concomitant]
     Active Substance: FUROSEMIDE
     Dosage: 1 DF, 2X/DAY (1-1-0)
  2. ALOPURINOL [Concomitant]
     Active Substance: ALLOPURINOL
  3. LANTUS [Concomitant]
     Active Substance: INSULIN GLARGINE
     Dosage: 28 IU, 1X/DAY (AT NIGHT)
  4. ACICLOVIR [Concomitant]
     Active Substance: ACYCLOVIR
     Dosage: UNK
     Dates: start: 20160112, end: 20160127
  5. SODIUM BICARBONATE. [Concomitant]
     Active Substance: SODIUM BICARBONATE
     Dosage: UNK
     Dates: start: 20160115, end: 20160115
  6. FENTANYL. [Concomitant]
     Active Substance: FENTANYL
     Dosage: UNK
     Dates: start: 20150225, end: 20160113
  7. IPRATROPIUM BROMIDE. [Concomitant]
     Active Substance: IPRATROPIUM BROMIDE
     Dosage: UNK
     Dates: start: 20151228, end: 20160113
  8. PANTOPRAZOLE [Concomitant]
     Active Substance: PANTOPRAZOLE SODIUM
  9. FUROSEMIDE. [Concomitant]
     Active Substance: FUROSEMIDE
     Dosage: UNK
     Dates: start: 20100912, end: 20160118
  10. INSULIN RAPID [Concomitant]
     Active Substance: INSULIN NOS
     Dosage: UNK
     Dates: start: 20090115, end: 20160130
  11. NOREPINEPHRINE [Concomitant]
     Active Substance: NOREPINEPHRINE\NOREPINEPHRINE BITARTRATE
     Dosage: UNK
     Dates: start: 20160111, end: 20160130
  12. LINEZOLID. [Suspect]
     Active Substance: LINEZOLID
     Indication: PNEUMONIA
     Dosage: 600 MG, 2X/DAY
     Route: 042
     Dates: start: 20160110, end: 20160115
  13. PHYTOMENADIONE [Concomitant]
     Active Substance: PHYTONADIONE
     Dosage: UNK
     Dates: start: 20151228, end: 20160113
  14. MAGNESIUM SULFATE. [Concomitant]
     Active Substance: MAGNESIUM SULFATE
     Dosage: UNK
     Dates: start: 20160113, end: 20160129
  15. MIDAZOLAM [Concomitant]
     Active Substance: MIDAZOLAM\MIDAZOLAM HYDROCHLORIDE
     Dosage: UNK
     Dates: start: 20090115, end: 20160116
  16. DILTIAZEM [Concomitant]
     Active Substance: DILTIAZEM
     Dosage: 90 MG, DAILY (60 MG IN THE MORNING, 30 MG AT NIGHT)
     Dates: start: 20151223, end: 20160129
  17. ALDACTONE [Concomitant]
     Active Substance: SPIRONOLACTONE
     Dosage: UNK, DAILY (EXCEPT ON SUNDAYS)
  18. AZTREONAM. [Concomitant]
     Active Substance: AZTREONAM
     Dosage: UNK
     Dates: start: 20160111, end: 20160114
  19. MONOSODIUM PHOSPHATE [Concomitant]
     Dosage: UNK
     Dates: start: 20160115, end: 20160129
  20. RILAST [Concomitant]
     Active Substance: BUDESONIDE\FORMOTEROL
     Dosage: UNK UNK, 2X/DAY (EVERY 12 HOURS)
  21. AMIODARONE [Concomitant]
     Active Substance: AMIODARONE
     Dosage: UNK
     Dates: start: 20160111, end: 20160118
  22. ENOXAPARIN [Concomitant]
     Active Substance: ENOXAPARIN
     Dosage: UNK
     Dates: start: 20160111, end: 20160112
  23. MEROPENEM. [Concomitant]
     Active Substance: MEROPENEM
     Dosage: UNK
     Dates: start: 20160115, end: 20160129
  24. MORPHINE [Concomitant]
     Active Substance: MORPHINE
     Dosage: UNK
     Dates: start: 20160114, end: 20160118
  25. POTASSIUM CHLORIDE. [Concomitant]
     Active Substance: POTASSIUM CHLORIDE
     Dosage: UNK
     Dates: start: 20090115, end: 20160123
  26. SALBUTAMOL [Concomitant]
     Active Substance: ALBUTEROL
     Dosage: UNK
     Dates: start: 20151228, end: 20160113
  27. IPRATROPIUM BROMIDE/SALBUTAMOL [Concomitant]
     Dosage: 5 MG SALBUTAMOL + 500 UG IPRATROPIUM
     Dates: start: 20131212, end: 20160111
  28. BUDESONIDE. [Concomitant]
     Active Substance: BUDESONIDE
     Dosage: UNK
     Dates: start: 20151229, end: 20160130
  29. DOBUTAMINE [Concomitant]
     Active Substance: DOBUTAMINE\DOBUTAMINE HYDROCHLORIDE
     Dosage: UNK
     Dates: start: 20160114, end: 20160115
  30. INSULIN ASPART [Concomitant]
     Active Substance: INSULIN ASPART
     Dosage: UNK
     Dates: start: 20160111, end: 20160111
  31. OMEPRAZOLE. [Concomitant]
     Active Substance: OMEPRAZOLE
     Dosage: UNK
     Dates: start: 20151223, end: 20160130
  32. THIAMINE. [Concomitant]
     Active Substance: THIAMINE
     Dosage: UNK
     Dates: start: 20160115, end: 20160129
  33. VORICONAZOLE. [Concomitant]
     Active Substance: VORICONAZOLE
     Dosage: UNK
     Dates: start: 20160115, end: 20160118
  34. IPRATROPIUM BROMIDE/SALBUTAMOL [Concomitant]
     Dosage: 2.5 MG SALBUTAMOL + 500 UG IPRATROPIUM
     Dates: start: 20151223, end: 20160112
  35. SINTROM [Concomitant]
     Active Substance: ACENOCOUMAROL
  36. ALBUMIN [Concomitant]
     Active Substance: ALBUMIN (HUMAN)
     Dosage: UNK
     Dates: start: 20160115, end: 20160118
  37. HYDROCORTISONE. [Concomitant]
     Active Substance: HYDROCORTISONE
     Dosage: UNK
     Dates: start: 20151223, end: 20160129
  38. METILPREDNISOLONE [Concomitant]
     Active Substance: METHYLPREDNISOLONE
     Dosage: UNK
     Dates: start: 20131212, end: 20160114
  39. DARBEPOETIN ALFA [Concomitant]
     Active Substance: DARBEPOETIN ALFA
     Dosage: 40 UG, MONTHLY

REACTIONS (3)
  - Methaemoglobinaemia [Recovered/Resolved]
  - Bronchoalveolar lavage abnormal [Not Recovered/Not Resolved]
  - Thrombocytopenia [Recovered/Resolved]

NARRATIVE: CASE EVENT DATE: 20160115
